FAERS Safety Report 10144430 (Version 1)
Quarter: 2014Q2

REPORT INFORMATION
  Report Type: Spontaneous
  Country: US (occurrence: US)
  Receive Date: 20140430
  Receipt Date: 20140430
  Transmission Date: 20141212
  Serious: No
  Sender: FDA-Public Use
  Company Number: US-009507513-1404USA014804

PATIENT
  Age: 47 Year
  Sex: Female

DRUGS (2)
  1. ISENTRESS [Suspect]
     Indication: HIV INFECTION
     Dosage: 400 MG, TWICE DAILY
     Route: 048
     Dates: start: 201312, end: 201401
  2. TRUVADA [Concomitant]
     Dosage: UNK
     Dates: end: 201401

REACTIONS (5)
  - Skin disorder [Recovered/Resolved]
  - Erythema [Recovered/Resolved]
  - Red blood cell sedimentation rate increased [Unknown]
  - C-reactive protein increased [Unknown]
  - Weight decreased [Unknown]
